FAERS Safety Report 23626058 (Version 2)
Quarter: 2024Q1

REPORT INFORMATION
  Report Type: Spontaneous
  Country: US (occurrence: US)
  Receive Date: 20240313
  Receipt Date: 20240318
  Transmission Date: 20240409
  Serious: No
  Sender: FDA-Public Use
  Company Number: US-BIOGEN-2024BI01254637

PATIENT
  Age: 48 Year
  Sex: Female

DRUGS (1)
  1. TYSABRI [Suspect]
     Active Substance: NATALIZUMAB
     Indication: Multiple sclerosis
     Route: 050
     Dates: start: 20240222

REACTIONS (1)
  - Magnetic resonance imaging abnormal [Unknown]

NARRATIVE: CASE EVENT DATE: 20240222
